FAERS Safety Report 6731715-8 (Version None)
Quarter: 2010Q2

REPORT INFORMATION
  Report Type: 
  Country: None (occurrence: None)
  Receive Date: 20100519
  Receipt Date: 20100506
  Transmission Date: 20101027
  Serious: Yes (Hospitalization, Other)
  Sender: FDA-Public Use
  Company Number: US-TYCO HEALTHCARE/MALLINCKRODT-T201001196

PATIENT

DRUGS (2)
  1. OPTIMARK [Suspect]
     Indication: NUCLEAR MAGNETIC RESONANCE IMAGING
     Dosage: UNK
     Dates: start: 20030226, end: 20030226
  2. GADOLINIUM [Suspect]
     Indication: NUCLEAR MAGNETIC RESONANCE IMAGING
     Dosage: UNK
     Dates: start: 20050101, end: 20050101

REACTIONS (16)
  - ANAEMIA [None]
  - ARTHRALGIA [None]
  - BACK PAIN [None]
  - ERYTHEMA [None]
  - EXCORIATION [None]
  - FEBRILE NEUTROPENIA [None]
  - GOUT [None]
  - HAEMANGIOMA [None]
  - LENTIGO [None]
  - MELANOCYTIC NAEVUS [None]
  - NEPHROGENIC SYSTEMIC FIBROSIS [None]
  - NEURODERMATITIS [None]
  - OEDEMA PERIPHERAL [None]
  - RENAL FAILURE [None]
  - SEBORRHOEIC KERATOSIS [None]
  - SPLENOMEGALY [None]
